FAERS Safety Report 7332380-1 (Version None)
Quarter: 2011Q1

REPORT INFORMATION
  Report Type: 
  Country: None (occurrence: None)
  Receive Date: 20110304
  Receipt Date: 20110302
  Transmission Date: 20110831
  Serious: Yes (Other)
  Sender: FDA-Public Use
  Company Number: B0699650A

PATIENT
  Sex: Female
  Weight: 64.2 kg

DRUGS (2)
  1. KIVEXA [Suspect]
     Indication: HIV INFECTION
     Route: 048
     Dates: start: 20061001, end: 20110215
  2. EFAVIRENZ [Concomitant]
     Dosage: 600MG PER DAY
     Route: 048
     Dates: start: 20051101

REACTIONS (2)
  - HEMIPARESIS [None]
  - CEREBROVASCULAR ACCIDENT [None]
